FAERS Safety Report 8625195-5 (Version None)
Quarter: 2012Q3

REPORT INFORMATION
  Report Type: 
  Country: None (occurrence: None)
  Receive Date: 20120827
  Receipt Date: 20120818
  Transmission Date: 20120928
  Serious: Yes (Death)
  Sender: FDA-Public Use
  Company Number: PH-BAXTER-2012BAX015195

PATIENT
  Sex: Female

DRUGS (2)
  1. DIANEAL PD4 WITH 4.25% DEXTROSE [Suspect]
     Route: 033
     Dates: start: 20110105
  2. DIANEAL PD4 WITH 1.5% DEXTROSE [Suspect]
     Route: 033
     Dates: start: 20110105

REACTIONS (1)
  - CARDIAC FAILURE [None]
